FAERS Safety Report 7497950-9 (Version None)
Quarter: 2011Q2

REPORT INFORMATION
  Report Type: 
  Country: None (occurrence: None)
  Receive Date: 20110524
  Receipt Date: 20110505
  Transmission Date: 20111010
  Serious: Yes (Other)
  Sender: FDA-Public Use
  Company Number: US-BAYER-2011-043288

PATIENT
  Age: 13 Year
  Sex: Female
  Weight: 64 kg

DRUGS (4)
  1. YAZ [Suspect]
     Indication: ACNE
     Dosage: UNK
     Dates: start: 20080101, end: 20080101
  2. SOLODYN [Concomitant]
  3. AMNESTEEM [Concomitant]
     Dosage: 40 MG, BID
  4. ACCUTANE [Concomitant]

REACTIONS (3)
  - PALPITATIONS [None]
  - HYPERTENSION [None]
  - DYSPNOEA [None]
